FAERS Safety Report 12234867 (Version 1)
Quarter: 2016Q2

REPORT INFORMATION
  Report Type: Spontaneous
  Country: US (occurrence: US)
  Receive Date: 20160404
  Receipt Date: 20160404
  Transmission Date: 20160815
  Serious: No
  Sender: FDA-Public Use
  Company Number: US-TEVA-548446USA

PATIENT
  Sex: Male

DRUGS (12)
  1. COREG [Concomitant]
     Active Substance: CARVEDILOL
  2. PRESARVISION [Concomitant]
  3. FOLATE [Concomitant]
     Active Substance: FOLATE SODIUM
  4. WARFARIN [Suspect]
     Active Substance: WARFARIN
     Indication: ATRIAL FIBRILLATION
     Dates: start: 2014
  5. RAMIPRIL. [Concomitant]
     Active Substance: RAMIPRIL
  6. TAMSULOSIN [Concomitant]
     Active Substance: TAMSULOSIN
     Dosage: .4 MILLIGRAM DAILY;
  7. ASA [Concomitant]
     Active Substance: ASPIRIN
  8. VITAMIN B12 [Concomitant]
     Active Substance: CYANOCOBALAMIN
  9. LIQUID CALCIUM MAGNESIUM CITRATE [Concomitant]
  10. ADVAIR HFA [Suspect]
     Active Substance: FLUTICASONE PROPIONATE\SALMETEROL XINAFOATE
     Route: 065
  11. SAW PALMETTO [Concomitant]
     Active Substance: SAW PALMETTO
  12. CARVEDILOL. [Concomitant]
     Active Substance: CARVEDILOL
     Dosage: 6.25 MILLIGRAM DAILY;

REACTIONS (8)
  - Anger [Unknown]
  - Agitation [Recovering/Resolving]
  - Amnesia [Unknown]
  - Confusional state [Unknown]
  - Nervousness [Unknown]
  - Aggression [Unknown]
  - Irritability [Unknown]
  - International normalised ratio increased [Unknown]
